FAERS Safety Report 17714669 (Version 2)
Quarter: 2020Q2

REPORT INFORMATION
  Report Type: Spontaneous
  Country: US (occurrence: US)
  Receive Date: 20200427
  Receipt Date: 20200604
  Transmission Date: 20200714
  Serious: Yes (Death, Other)
  Sender: FDA-Public Use
  Company Number: US-PURDUE-USA-2020-0152039

PATIENT
  Age: 43 Year
  Sex: Male

DRUGS (3)
  1. OXYCONTIN [Suspect]
     Active Substance: OXYCODONE HYDROCHLORIDE
     Indication: BACK INJURY
  2. OXYCONTIN [Suspect]
     Active Substance: OXYCODONE HYDROCHLORIDE
     Indication: HAND AMPUTATION
  3. OXYCONTIN [Suspect]
     Active Substance: OXYCODONE HYDROCHLORIDE
     Indication: ACCIDENT AT WORK
     Dosage: 80 MG, 15 TABLETS DAILY
     Route: 048
     Dates: start: 2003

REACTIONS (3)
  - Drug dependence [Unknown]
  - Road traffic accident [Fatal]
  - Overdose [Fatal]

NARRATIVE: CASE EVENT DATE: 2006
